FAERS Safety Report 19408230 (Version 3)
Quarter: 2021Q3

REPORT INFORMATION
  Report Type: Spontaneous
  Country: IN (occurrence: IN)
  Receive Date: 20210611
  Receipt Date: 20210903
  Transmission Date: 20211014
  Serious: Yes (Other)
  Sender: FDA-Public Use
  Company Number: IN-PFIZER INC-2021640847

PATIENT
  Age: 49 Year
  Sex: Male

DRUGS (3)
  1. CRIZALK [Suspect]
     Active Substance: CRIZOTINIB
     Indication: NON-SMALL CELL LUNG CANCER
     Dosage: 250 MG, 1X/DAY
     Route: 048
     Dates: start: 20210318
  2. ZOLEDRONIC ACID [Concomitant]
     Active Substance: ZOLEDRONIC ACID
     Dosage: 4 MG
  3. ZINCOVIT [ASCORBIC ACID;BIOTIN;CHROMIUM;COLECALCIFEROL;COPPER;FOLIC AC [Concomitant]
     Dosage: UNK, DAILY (1OD)

REACTIONS (4)
  - Blood magnesium increased [Unknown]
  - Pustule [Unknown]
  - Haemoglobin decreased [Unknown]
  - COVID-19 [Unknown]

NARRATIVE: CASE EVENT DATE: 20210716
